FAERS Safety Report 15805732 (Version 11)
Quarter: 2021Q2

REPORT INFORMATION
  Report Type: Spontaneous
  Country: US (occurrence: US)
  Receive Date: 20190110
  Receipt Date: 20210629
  Transmission Date: 20210716
  Serious: Yes (Hospitalization, Other)
  Sender: FDA-Public Use
  Company Number: US-SA-2019SA004269

PATIENT
  Age: 56 Year
  Sex: Female

DRUGS (1)
  1. AUBAGIO [Suspect]
     Active Substance: TERIFLUNOMIDE
     Indication: MULTIPLE SCLEROSIS
     Dosage: 14 MG, QD
     Dates: start: 20170308

REACTIONS (11)
  - Anaemia [Unknown]
  - Iron deficiency [Unknown]
  - Abscess [Unknown]
  - Acute kidney injury [Unknown]
  - Pathogen resistance [Unknown]
  - Haemoglobin decreased [Unknown]
  - Urosepsis [Unknown]
  - Irritable bowel syndrome [Unknown]
  - Pyrexia [Unknown]
  - Escherichia bacteraemia [Unknown]
  - Hospitalisation [Unknown]

NARRATIVE: CASE EVENT DATE: 2020
